FAERS Safety Report 6887098-6 (Version None)
Quarter: 2010Q3

REPORT INFORMATION
  Report Type: 
  Country: None (occurrence: None)
  Receive Date: 20100730
  Receipt Date: 20100727
  Transmission Date: 20110219
  Serious: Yes (Hospitalization)
  Sender: FDA-Public Use
  Company Number: US-GILEAD-2010-0029923

PATIENT
  Sex: Female
  Weight: 85.806 kg

DRUGS (19)
  1. LETAIRIS [Suspect]
     Indication: PULMONARY ARTERIAL HYPERTENSION
     Route: 048
     Dates: start: 20090702
  2. TYVASO [Concomitant]
     Indication: PULMONARY ARTERIAL HYPERTENSION
  3. OXYGEN [Concomitant]
  4. WARFARIN SODIUM [Concomitant]
  5. FUROSEMIDE [Concomitant]
  6. FENTANYL [Concomitant]
  7. OXYCODONE [Concomitant]
  8. TRAMADOL HYDROCHLORIDE [Concomitant]
  9. ALBUTEROL [Concomitant]
  10. HUMULIN R [Concomitant]
  11. LOTRISONE [Concomitant]
  12. LORAZEPAM [Concomitant]
  13. SOMA [Concomitant]
  14. TOPAMAX [Concomitant]
  15. ZOLOFT [Concomitant]
  16. NEXIUM [Concomitant]
  17. PROMETHAZINE [Concomitant]
  18. FOLIC ACID [Concomitant]
  19. POTASSIUM CHLORIDE [Concomitant]

REACTIONS (1)
  - SICKLE CELL ANAEMIA [None]
